FAERS Safety Report 7272576-0 (Version None)
Quarter: 2011Q1

REPORT INFORMATION
  Report Type: 
  Country: None (occurrence: None)
  Receive Date: 20110203
  Receipt Date: 20110128
  Transmission Date: 20110831
  Serious: Yes (Other)
  Sender: FDA-Public Use
  Company Number: GB-ROCHE-756497

PATIENT
  Age: 19 Year
  Sex: Male

DRUGS (10)
  1. FUROSEMIDE [Concomitant]
  2. LANSOPRAZOLE [Concomitant]
  3. BISOPROLOL FUMARATE [Concomitant]
  4. LISINOPRIL [Concomitant]
  5. SPIRONOLACTONE [Concomitant]
  6. WARFARIN SODIUM [Concomitant]
  7. OSELTAMIVIR [Suspect]
     Indication: VIRAL INFECTION
     Route: 048
     Dates: start: 20110120, end: 20110124
  8. ACETAMINOPHEN [Concomitant]
  9. FONDAPARINUX SODIUM [Concomitant]
  10. AMOXICILLIN [Concomitant]

REACTIONS (1)
  - CONVULSION [None]
